FAERS Safety Report 12119672 (Version 1)
Quarter: 2016Q1

REPORT INFORMATION
  Report Type: Spontaneous
  Country: US (occurrence: None)
  Receive Date: 20160225
  Receipt Date: 20160225
  Transmission Date: 20160526
  Serious: No
  Sender: FDA-Public Use
  Company Number: None

PATIENT
  Age: 35 Year
  Sex: Female
  Weight: 102.97 kg

DRUGS (7)
  1. COQ10 [Concomitant]
     Active Substance: UBIDECARENONE
  2. VITAMIN B12 [Concomitant]
     Active Substance: CYANOCOBALAMIN
  3. PHENTERMINE. [Suspect]
     Active Substance: PHENTERMINE
     Indication: WEIGHT DECREASED
     Dosage: 1 PILL ONCE DAILY
     Dates: start: 20160222, end: 20160224
  4. PERCOCET [Concomitant]
     Active Substance: ACETAMINOPHEN\OXYCODONE HYDROCHLORIDE
  5. TURMERIC [Concomitant]
     Active Substance: TURMERIC
  6. ERRIN-BIRTH CONTROL [Concomitant]
  7. HYALRUONIC ACID (SUPPLEMENT) [Concomitant]

REACTIONS (6)
  - Hot flush [None]
  - Social problem [None]
  - Chills [None]
  - Hyperhidrosis [None]
  - Impaired work ability [None]
  - Sleep disorder [None]

NARRATIVE: CASE EVENT DATE: 20160224
